FAERS Safety Report 7945582-8 (Version None)
Quarter: 2011Q4

REPORT INFORMATION
  Report Type: 
  Country: None (occurrence: None)
  Receive Date: 20111129
  Receipt Date: 20111124
  Transmission Date: 20120403
  Serious: Yes (Death, Other)
  Sender: FDA-Public Use
  Company Number: KR-JNJFOC-20111104746

PATIENT
  Age: 38 Year
  Sex: Female

DRUGS (5)
  1. TRAZODONE HCL [Concomitant]
     Indication: DEPRESSION
     Route: 048
     Dates: start: 20110922
  2. ZOLPIDEM TARTRATE [Concomitant]
     Indication: INSOMNIA
     Route: 048
     Dates: start: 20111020
  3. TOPAMAX [Suspect]
     Route: 048
     Dates: start: 20110713
  4. TRAZODONE HCL [Concomitant]
     Indication: INSOMNIA
     Route: 048
     Dates: start: 20110922
  5. TOPAMAX [Suspect]
     Indication: EPILEPSY
     Route: 048

REACTIONS (2)
  - COMPLETED SUICIDE [None]
  - DEPRESSED MOOD [None]
